FAERS Safety Report 9458841 (Version 2)
Quarter: 2013Q4

REPORT INFORMATION
  Report Type: Spontaneous
  Country: IT (occurrence: IT)
  Receive Date: 20130814
  Receipt Date: 20131003
  Transmission Date: 20140711
  Serious: Yes (Hospitalization)
  Sender: FDA-Public Use
  Company Number: IT-CELGENEUS-083-21880-13080232

PATIENT
  Age: 73 Year
  Sex: Male
  Weight: 71 kg

DRUGS (3)
  1. REVLIMID [Suspect]
     Indication: PLASMA CELL MYELOMA
     Dosage: 25 MILLIGRAM
     Route: 048
     Dates: start: 20130622, end: 20130710
  2. LYRICA [Concomitant]
     Indication: POLYNEUROPATHY IN MALIGNANT DISEASE
     Route: 048
     Dates: start: 20121201, end: 20130710
  3. SOLDESAM [Concomitant]
     Indication: PLASMA CELL MYELOMA
     Route: 041
     Dates: start: 20130622, end: 20130709

REACTIONS (3)
  - Dyskinesia [Unknown]
  - Renal failure acute [Unknown]
  - Haemoglobin decreased [Unknown]
